FAERS Safety Report 7270870-0 (Version None)
Quarter: 2011Q1

REPORT INFORMATION
  Report Type: 
  Country: None (occurrence: None)
  Receive Date: 20110202
  Receipt Date: 20110125
  Transmission Date: 20110831
  Serious: Yes (Other)
  Sender: FDA-Public Use
  Company Number: GB-ASTRAZENECA-2011SE04277

PATIENT
  Age: 60 Year
  Sex: Male

DRUGS (4)
  1. CLENIL MODULITE [Concomitant]
     Route: 055
     Dates: end: 20101210
  2. IPRATROPIUM BROMIDE [Concomitant]
     Route: 055
     Dates: end: 20101210
  3. SYMBICORT [Suspect]
     Dosage: 200 UG
     Route: 055
     Dates: start: 20101210, end: 20101217
  4. ALBUTEROL [Concomitant]
     Route: 055

REACTIONS (5)
  - GLOSSODYNIA [None]
  - URTICARIA [None]
  - OROPHARYNGEAL PAIN [None]
  - LIP SWELLING [None]
  - ERYTHEMA [None]
